FAERS Safety Report 24543767 (Version 5)
Quarter: 2025Q1

REPORT INFORMATION
  Report Type: Spontaneous
  Country: US (occurrence: US)
  Receive Date: 20241024
  Receipt Date: 20250324
  Transmission Date: 20250409
  Serious: No
  Sender: ELI LILLY AND COMPANY
  Company Number: US-ELI_LILLY_AND_COMPANY-US202410016326

PATIENT
  Age: 81 Year

DRUGS (1)
  1. FORTEO [Suspect]
     Active Substance: TERIPARATIDE
     Indication: Osteoporosis
     Route: 058
     Dates: start: 20231216, end: 20240104

REACTIONS (17)
  - Cyanosis [Not Recovered/Not Resolved]
  - Balance disorder [Unknown]
  - Labile blood pressure [Unknown]
  - Joint swelling [Not Recovered/Not Resolved]
  - Vasospasm [Not Recovered/Not Resolved]
  - Pollakiuria [Not Recovered/Not Resolved]
  - Dry eye [Unknown]
  - Brain fog [Unknown]
  - Nervousness [Unknown]
  - Arthritis [Unknown]
  - Peripheral venous disease [Unknown]
  - Parathyroid disorder [Not Recovered/Not Resolved]
  - Hyperkeratosis [Not Recovered/Not Resolved]
  - Headache [Unknown]
  - Arthralgia [Not Recovered/Not Resolved]
  - Hypertension [Recovered/Resolved]
  - Depressed mood [Unknown]
